FAERS Safety Report 16001692 (Version 2)
Quarter: 2019Q1

REPORT INFORMATION
  Report Type: Spontaneous
  Country: US (occurrence: US)
  Receive Date: 20190225
  Receipt Date: 20190314
  Transmission Date: 20190418
  Serious: No
  Sender: FDA-Public Use
  Company Number: US-PFIZER INC-2019074576

PATIENT
  Age: 52 Year
  Sex: Female
  Weight: 109.3 kg

DRUGS (2)
  1. SILDENAFIL CITRATE. [Suspect]
     Active Substance: SILDENAFIL CITRATE
     Indication: PULMONARY HYPERTENSION
     Dosage: UNK
  2. REMODULIN [Suspect]
     Active Substance: TREPROSTINIL
     Indication: PULMONARY ARTERIAL HYPERTENSION
     Dosage: UNK (DOSE - 44 NG/KG/M IN )
     Route: 042
     Dates: start: 20180717

REACTIONS (2)
  - Throat irritation [Unknown]
  - Dyspepsia [Unknown]
